FAERS Safety Report 8421699-9 (Version None)
Quarter: 2012Q2

REPORT INFORMATION
  Report Type: 
  Country: None (occurrence: None)
  Receive Date: 20120608
  Receipt Date: 20110622
  Transmission Date: 20120825
  Serious: No
  Sender: FDA-Public Use
  Company Number: US-GLAXOSMITHKLINE-A0932941A

PATIENT

DRUGS (2)
  1. ALTABAX [Suspect]
     Indication: PRODUCT USED FOR UNKNOWN INDICATION
     Route: 061
     Dates: start: 20110601, end: 20110601
  2. NO CONCURRENT MEDICATION [Concomitant]

REACTIONS (1)
  - APPLICATION SITE REACTION [None]
